FAERS Safety Report 8808727 (Version 1)
Quarter: 2012Q4

REPORT INFORMATION
  Report Type: 
  Country: MY (occurrence: MY)
  Receive Date: 20120926
  Receipt Date: 20120926
  Transmission Date: 20130627
  Serious: Yes (Other)
  Sender: FDA-Public Use
  Company Number: MY-RANBAXY-2012R3-60110

PATIENT
  Age: 40 Year
  Sex: Female

DRUGS (1)
  1. RIOMET [Suspect]
     Indication: DIABETES MELLITUS
     Dosage: 2 g, daily
     Route: 048

REACTIONS (3)
  - Dyspnoea [Unknown]
  - Dizziness [Unknown]
  - Nausea [Unknown]
